FAERS Safety Report 4898463-0 (Version None)
Quarter: 2006Q1

REPORT INFORMATION
  Report Type: 
  Country: None (occurrence: None)
  Receive Date: 20060202
  Receipt Date: 20060126
  Transmission Date: 20060701
  Serious: Yes (Hospitalization, Other)
  Sender: FDA-Public Use
  Company Number: PHEH2006US01425

PATIENT
  Age: 47 Year
  Sex: Female

DRUGS (4)
  1. TRILEPTAL [Suspect]
     Indication: CONVULSION
     Dosage: 2400 MG, QD
     Route: 048
  2. LAMICTAL [Concomitant]
  3. LORAZEPAM [Concomitant]
     Dosage: UNK, PRN
  4. CHEMOTHERAPEUTICS,OTHER [Suspect]

REACTIONS (10)
  - ASTHENIA [None]
  - BLOOD ELECTROLYTES DECREASED [None]
  - BLOOD MAGNESIUM DECREASED [None]
  - BLOOD POTASSIUM DECREASED [None]
  - BLOOD SODIUM DECREASED [None]
  - BREAST CANCER FEMALE [None]
  - CONVULSION [None]
  - DIPLOPIA [None]
  - FATIGUE [None]
  - VISUAL ACUITY REDUCED [None]
